FAERS Safety Report 8547431-6 (Version None)
Quarter: 2012Q3

REPORT INFORMATION
  Report Type: 
  Country: None (occurrence: None)
  Receive Date: 20120727
  Receipt Date: 20120412
  Transmission Date: 20120928
  Serious: No
  Sender: FDA-Public Use
  Company Number: US-ASTRAZENECA-2012SE24522

PATIENT
  Age: 28 Year
  Sex: Male

DRUGS (3)
  1. SEROQUEL [Suspect]
     Route: 048
  2. CELEXA [Concomitant]
  3. CYMBALTA [Concomitant]

REACTIONS (2)
  - PREMATURE BABY [None]
  - EXPOSURE VIA FATHER [None]
